FAERS Safety Report 6176902-5 (Version None)
Quarter: 2009Q2

REPORT INFORMATION
  Report Type: 
  Country: None (occurrence: None)
  Receive Date: 20090501
  Receipt Date: 20090422
  Transmission Date: 20091009
  Serious: Yes (Hospitalization, Other)
  Sender: FDA-Public Use
  Company Number: US-AMGEN-QUU332259

PATIENT
  Sex: Male

DRUGS (1)
  1. ENBREL [Suspect]
     Indication: PSORIASIS
     Route: 064
     Dates: start: 20040406

REACTIONS (5)
  - BLOOD CALCIUM DECREASED [None]
  - BLOOD PHOSPHORUS INCREASED [None]
  - INGUINAL HERNIA [None]
  - JAUNDICE [None]
  - LACTOSE INTOLERANCE [None]
